FAERS Safety Report 9726401 (Version 1)
Quarter: 2013Q4

REPORT INFORMATION
  Report Type: Spontaneous
  Country: US (occurrence: None)
  Receive Date: 20131202
  Receipt Date: 20131202
  Transmission Date: 20140711
  Serious: Yes (Hospitalization)
  Sender: FDA-Public Use
  Company Number: None

PATIENT
  Age: 75 Year
  Sex: Male
  Weight: 86.2 kg

DRUGS (11)
  1. SULFAMETHOXAZOLE-TRIMETHOPRIM [Suspect]
     Route: 048
  2. AMIODARONE [Concomitant]
  3. ASPIRIN [Concomitant]
  4. ATORVASTATIN [Concomitant]
  5. CITALOPRAM [Concomitant]
  6. CLOPIDOGREL [Concomitant]
  7. LISPRO [Concomitant]
  8. METOPROLOL [Concomitant]
  9. SULFAMETHOXAZOLE-TRIMETHOPRIM [Concomitant]
  10. VANCOMYCIN [Concomitant]
  11. CEFAZOLIN [Concomitant]

REACTIONS (4)
  - Stomatitis [None]
  - Swollen tongue [None]
  - Stevens-Johnson syndrome [None]
  - Rash [None]
